FAERS Safety Report 23470552 (Version 2)
Quarter: 2024Q1

REPORT INFORMATION
  Report Type: Spontaneous
  Country: JP (occurrence: JP)
  Receive Date: 20240202
  Receipt Date: 20240209
  Transmission Date: 20240409
  Serious: Yes (Death, Hospitalization)
  Sender: FDA-Public Use
  Company Number: JP-DSJP-DSJ-2024-103798

PATIENT

DRUGS (1)
  1. DENOSUMAB [Suspect]
     Active Substance: DENOSUMAB
     Indication: Osteoporosis
     Dosage: 60 MILLIGRAM, Q6MO
     Route: 058
     Dates: start: 20220302, end: 20231114

REACTIONS (4)
  - Humerus fracture [Unknown]
  - Lumbar vertebral fracture [Unknown]
  - Humerus fracture [Unknown]
  - Colon cancer [Fatal]

NARRATIVE: CASE EVENT DATE: 20220610
